FAERS Safety Report 16209416 (Version 1)
Quarter: 2019Q2

REPORT INFORMATION
  Report Type: Spontaneous
  Country: IT (occurrence: IT)
  Receive Date: 20190417
  Receipt Date: 20190417
  Transmission Date: 20190711
  Serious: Yes (Life-Threatening, Other)
  Sender: FDA-Public Use
  Company Number: IT-MYLANLABS-2019M1036551

PATIENT
  Age: 83 Year
  Sex: Male

DRUGS (2)
  1. BECLOMETHASONE                     /00212602/ [Suspect]
     Active Substance: BECLOMETHASONE
     Indication: PRODUCT USED FOR UNKNOWN INDICATION
     Dosage: 100 MILLIGRAM,100 MG, UNKNOWN FREQ. (PRESSURIZED METERED DOSE INHALER)
     Route: 055
  2. FORMOTEROL [Suspect]
     Active Substance: FORMOTEROL
     Indication: PRODUCT USED FOR UNKNOWN INDICATION
     Dosage: 6 MILLIGRAM,6 MG, UNKNOWN FREQ. (PRESSURIZED METERED DOSE INHALER)
     Route: 055

REACTIONS (1)
  - Strongyloidiasis [Recovered/Resolved]
